FAERS Safety Report 5292257-2 (Version None)
Quarter: 2007Q2

REPORT INFORMATION
  Report Type: 
  Country: None (occurrence: None)
  Receive Date: 20070410
  Receipt Date: 20070327
  Transmission Date: 20071010
  Serious: Yes (Hospitalization)
  Sender: FDA-Public Use
  Company Number: PHNR2007AU00914

PATIENT
  Sex: Female

DRUGS (3)
  1. FEMARA [Suspect]
     Indication: NEOPLASM MALIGNANT
     Route: 048
     Dates: start: 20030101
  2. CLONAZEPAM [Concomitant]
     Indication: EPILEPSY
     Dates: start: 19810101
  3. GAVISCON                                /GFR/ [Concomitant]

REACTIONS (12)
  - BACK PAIN [None]
  - BRONCHOSPASM [None]
  - COUGH [None]
  - GAIT DISTURBANCE [None]
  - HERNIA [None]
  - HERNIA REPAIR [None]
  - INTESTINAL FUNCTIONAL DISORDER [None]
  - OESOPHAGITIS [None]
  - REFLUX GASTRITIS [None]
  - RIB FRACTURE [None]
  - WAIST CIRCUMFERENCE INCREASED [None]
  - WALKING AID USER [None]
